FAERS Safety Report 8225055-8 (Version None)
Quarter: 2012Q1

REPORT INFORMATION
  Report Type: 
  Country: None (occurrence: None)
  Receive Date: 20120321
  Receipt Date: 20120307
  Transmission Date: 20120608
  Serious: Yes (Death)
  Sender: FDA-Public Use
  Company Number: FR-ROCHE-1046707

PATIENT
  Sex: Male

DRUGS (11)
  1. DOXORUBICIN HCL [Suspect]
     Indication: DIFFUSE LARGE B-CELL LYMPHOMA
     Route: 042
     Dates: start: 20120205
  2. PREDNISOLONE [Concomitant]
     Dosage: 50 MG TWICE
  3. MABTHERA [Suspect]
     Indication: DIFFUSE LARGE B-CELL LYMPHOMA
     Route: 042
     Dates: start: 20120202
  4. ROCEPHIN [Concomitant]
     Dates: start: 20120202
  5. HYDROCORTISONE [Concomitant]
  6. METHOTREXATE [Suspect]
     Indication: DIFFUSE LARGE B-CELL LYMPHOMA
     Route: 042
     Dates: start: 20120204
  7. CALCIUM FOLINATE [Concomitant]
  8. VINCRISTINE [Suspect]
     Indication: DIFFUSE LARGE B-CELL LYMPHOMA
     Route: 042
     Dates: start: 20120204
  9. LASIX [Concomitant]
     Route: 042
  10. METHOTREXATE [Suspect]
     Route: 037
  11. CYCLOPHOSPHAMIDE [Suspect]
     Indication: DIFFUSE LARGE B-CELL LYMPHOMA
     Route: 042
     Dates: start: 20120205, end: 20120207

REACTIONS (2)
  - HEPATIC FAILURE [None]
  - TOXIC EPIDERMAL NECROLYSIS [None]
